FAERS Safety Report 10170244 (Version 2)
Quarter: 2014Q2

REPORT INFORMATION
  Report Type: Spontaneous
  Country: GB (occurrence: GB)
  Receive Date: 20140513
  Receipt Date: 20140513
  Transmission Date: 20141212
  Serious: Yes (Other)
  Sender: FDA-Public Use
  Company Number: GB-PFIZER INC-2014128057

PATIENT
  Age: 59 Year
  Sex: Male
  Weight: 84 kg

DRUGS (6)
  1. RAMIPRIL [Suspect]
     Indication: HYPERTENSION
     Dosage: 2.5 MG, UNK
     Route: 048
     Dates: start: 20140101
  2. AMLODIPINE [Concomitant]
     Dosage: UNK
     Route: 065
  3. FERROUS FUMARATE [Concomitant]
     Dosage: UNK
     Route: 065
  4. METFORMIN [Concomitant]
     Dosage: UNK
     Route: 065
  5. OMEPRAZOLE [Concomitant]
     Dosage: UNK
     Route: 065
  6. PROCHLORPERAZINE [Concomitant]
     Dosage: UNK
     Route: 065

REACTIONS (3)
  - Dizziness [Not Recovered/Not Resolved]
  - Product substitution issue [Unknown]
  - Cerebrovascular accident [Unknown]
